FAERS Safety Report 16738003 (Version 3)
Quarter: 2019Q3

REPORT INFORMATION
  Report Type: Report from Study
  Country: NL (occurrence: NL)
  Receive Date: 20190824
  Receipt Date: 20190906
  Transmission Date: 20191005
  Serious: Yes (Other)
  Sender: FDA-Public Use
  Company Number: NL-AMGEN-NLDSL2019110222

PATIENT
  Age: 70 Year
  Sex: Male

DRUGS (16)
  1. GOSERELIN [Concomitant]
     Active Substance: GOSERELIN
     Dosage: 10.8 MILLIGRAM (1X3M1INJ.)
  2. LOPERAMIDE [Concomitant]
     Active Substance: LOPERAMIDE
     Dosage: 2 MILLIGRAM, 1-2D1C
  3. METFORMINE [METFORMIN HYDROCHLORIDE] [Concomitant]
     Active Substance: METFORMIN HYDROCHLORIDE
     Dosage: 500 MILLIGRAM, QD
  4. OMEPRAZOL [OMEPRAZOLE MAGNESIUM] [Concomitant]
     Dosage: 20 MILLIGRAM, 1D1C
  5. DOCETAXEL. [Concomitant]
     Active Substance: DOCETAXEL
     Dosage: UNK
  6. XGEVA [Suspect]
     Active Substance: DENOSUMAB
     Indication: PROPHYLAXIS
     Dosage: 120 MILLIGRAM PER MILLILITRE/70MG/ML FLACON 1,7ML, Q4WK
     Route: 065
     Dates: start: 2017
  7. BISOPROLOL [Concomitant]
     Active Substance: BISOPROLOL
     Dosage: 2.5 MILLIGRAM, QD
  8. CALCIUM CARBONATE W/COLECALCIFEROL [Concomitant]
     Active Substance: CALCIUM CARBONATE\CHOLECALCIFEROL
     Dosage: 500 MILLIGRAM CA (1.25G/440IE), QD
  9. AMOXICILLINE [AMOXICILLIN] [Concomitant]
     Active Substance: AMOXICILLIN
     Dosage: 500 MILLIGRAM, TID
  10. CLINDAMYCINE [CLINDAMYCIN] [Concomitant]
     Active Substance: CLINDAMYCIN
     Dosage: 300 MILLIGRAM, 4 TIMES DAILY
  11. CYPROTERON [Concomitant]
     Dosage: 50 MILLIGRAM, BID
  12. EZETIMIBA/SIMVASTATINA [Concomitant]
     Dosage: (10/40MG), QD
  13. FOLIC ACID. [Concomitant]
     Active Substance: FOLIC ACID
     Dosage: 5 MILLIGRAM, 2 TIMES/WK
  14. METHOTREXAAT [METHOTREXATE SODIUM] [Concomitant]
     Dosage: 2.5 MILLIGRAM, 1W6T
  15. ZOLADEX [Concomitant]
     Active Substance: GOSERELIN ACETATE
     Dosage: UNK
  16. CALCIUM [Concomitant]
     Active Substance: CALCIUM
     Dosage: UNK

REACTIONS (5)
  - Neuralgia [Unknown]
  - Exostosis of jaw [Unknown]
  - Osteonecrosis of jaw [Unknown]
  - Odynophagia [Unknown]
  - Oropharyngeal pain [Unknown]

NARRATIVE: CASE EVENT DATE: 20190704
